FAERS Safety Report 5036767-1 (Version None)
Quarter: 2006Q2

REPORT INFORMATION
  Report Type: 
  Country: None (occurrence: None)
  Receive Date: 20060628
  Receipt Date: 20060619
  Transmission Date: 20061013
  Serious: Yes (Other)
  Sender: FDA-Public Use
  Company Number: CN-JNJFOC-20060604283

PATIENT
  Age: 27 Year
  Sex: Female

DRUGS (1)
  1. DAKTARIN [Suspect]
     Indication: VAGINAL CANDIDIASIS
     Dosage: SUPPOSITORY
     Route: 067
     Dates: start: 20060604, end: 20060615

REACTIONS (2)
  - VAGINAL HAEMORRHAGE [None]
  - VULVOVAGINAL DRYNESS [None]
